FAERS Safety Report 6254081-3 (Version None)
Quarter: 2009Q3

REPORT INFORMATION
  Report Type: 
  Country: None (occurrence: None)
  Receive Date: 20090702
  Receipt Date: 20090624
  Transmission Date: 20100115
  Serious: Yes (Other)
  Sender: FDA-Public Use
  Company Number: AU-ASTRAZENECA-2009SE01846

PATIENT
  Age: 74 Year
  Sex: Female

DRUGS (2)
  1. NEXIUM [Suspect]
     Indication: GASTROOESOPHAGEAL REFLUX DISEASE
     Route: 048
     Dates: start: 20090514, end: 20090514
  2. NEXIUM [Suspect]
     Route: 048
     Dates: start: 20090515, end: 20090515

REACTIONS (7)
  - ABDOMINAL DISCOMFORT [None]
  - ALOPECIA [None]
  - ERYTHEMA [None]
  - HEADACHE [None]
  - JOINT SWELLING [None]
  - MYALGIA [None]
  - PAIN IN EXTREMITY [None]
